FAERS Safety Report 4526054-X (Version None)
Quarter: 2004Q4

REPORT INFORMATION
  Report Type: 
  Country: None (occurrence: None)
  Receive Date: 20041129
  Receipt Date: 20040805
  Transmission Date: 20050328
  Serious: Yes (Hospitalization)
  Sender: FDA-Public Use
  Company Number: USA040874742

PATIENT
  Sex: Male

DRUGS (4)
  1. ZYPREXA [Suspect]
     Dosage: 30 MG
     Dates: start: 20020101, end: 20030101
  2. ATIVAN [Concomitant]
  3. LITHIUM [Concomitant]
  4. PROPRANOLOL [Concomitant]

REACTIONS (4)
  - AKATHISIA [None]
  - OVERDOSE [None]
  - PRESCRIBED OVERDOSE [None]
  - RESTLESSNESS [None]
